FAERS Safety Report 20701659 (Version 1)
Quarter: 2022Q2

REPORT INFORMATION
  Report Type: Spontaneous
  Country: US (occurrence: None)
  Receive Date: 20220411
  Receipt Date: 20220411
  Transmission Date: 20220720
  Serious: No
  Sender: FDA-Public Use
  Company Number: None

PATIENT
  Age: 60 Year
  Sex: Female

DRUGS (13)
  1. INGREZZA [Suspect]
     Active Substance: VALBENAZINE
     Indication: Tardive dyskinesia
     Dosage: FREQUENCY : DAILY;?
     Route: 048
     Dates: start: 20220210, end: 20220408
  2. AMLODIPINE [Concomitant]
     Active Substance: AMLODIPINE BESYLATE
  3. Chlorzoxazone 500 mg [Concomitant]
  4. DULOXETINE [Concomitant]
     Active Substance: DULOXETINE
  5. ESOMEPRAZOLE [Concomitant]
     Active Substance: ESOMEPRAZOLE
  6. EZETIMIBE [Concomitant]
     Active Substance: EZETIMIBE
  7. FAMOTIDINE [Concomitant]
     Active Substance: FAMOTIDINE
  8. Hydroxyzine 50 mg [Concomitant]
  9. LISINOPRIL [Concomitant]
     Active Substance: LISINOPRIL
  10. ACETAMINOPHEN\OXYCODONE HYDROCHLORIDE [Concomitant]
     Active Substance: ACETAMINOPHEN\OXYCODONE HYDROCHLORIDE
  11. SIMVASTATIN [Concomitant]
     Active Substance: SIMVASTATIN
  12. SOLIFENACIN SUCCINATE [Concomitant]
     Active Substance: SOLIFENACIN SUCCINATE
  13. Trulance 3 mg [Concomitant]

REACTIONS (2)
  - Tardive dyskinesia [None]
  - Condition aggravated [None]

NARRATIVE: CASE EVENT DATE: 20220210
